FAERS Safety Report 9285408 (Version 1)
Quarter: 2013Q2

REPORT INFORMATION
  Report Type: Spontaneous
  Country: US (occurrence: None)
  Receive Date: 20130510
  Receipt Date: 20130510
  Transmission Date: 20140414
  Serious: Yes (Death)
  Sender: FDA-Public Use
  Company Number: None

PATIENT
  Age: 56 Year
  Sex: Male
  Weight: 81.65 kg

DRUGS (2)
  1. ZPACK [Suspect]
     Indication: UPPER RESPIRATORY TRACT INFECTION
     Dates: start: 20120605
  2. BENZOATE [Concomitant]

REACTIONS (1)
  - Unresponsive to stimuli [None]
